FAERS Safety Report 7803070-3 (Version None)
Quarter: 2011Q4

REPORT INFORMATION
  Report Type: 
  Country: None (occurrence: None)
  Receive Date: 20111007
  Receipt Date: 20110926
  Transmission Date: 20120403
  Serious: Yes (Hospitalization, Other)
  Sender: FDA-Public Use
  Company Number: US-PFIZER INC-2011140701

PATIENT
  Sex: Female

DRUGS (3)
  1. VENLAFAXINE [Suspect]
     Dosage: UNK
  2. EFFEXOR [Suspect]
     Dosage: UNK
  3. PRISTIQ [Suspect]
     Dosage: 50 MG, 1X/DAY, EVERY MORNING
     Dates: start: 20080101

REACTIONS (7)
  - RHEUMATOID ARTHRITIS [None]
  - SPINAL COLUMN STENOSIS [None]
  - NAUSEA [None]
  - FALL [None]
  - NEUROPATHY PERIPHERAL [None]
  - DIARRHOEA [None]
  - PERONEAL NERVE PALSY [None]
